FAERS Safety Report 5890116-5 (Version None)
Quarter: 2008Q3

REPORT INFORMATION
  Report Type: 
  Country: None (occurrence: None)
  Receive Date: 20080919
  Receipt Date: 20080829
  Transmission Date: 20090109
  Serious: No
  Sender: FDA-Public Use
  Company Number: US-B.I. PHARMACEUTICALS,INC./RIDGEFIELD-2008-BP-13924BP

PATIENT
  Age: 30 Year
  Sex: Male

DRUGS (2)
  1. MIRAPEX [Suspect]
     Indication: RESTLESS LEGS SYNDROME
     Route: 048
     Dates: start: 20080301, end: 20080301
  2. ULTRAM [Concomitant]

REACTIONS (2)
  - DRUG INEFFECTIVE [None]
  - HEADACHE [None]
